FAERS Safety Report 5127457-5 (Version None)
Quarter: 2006Q4

REPORT INFORMATION
  Report Type: 
  Country: None (occurrence: None)
  Receive Date: 20061010
  Receipt Date: 20060927
  Transmission Date: 20070319
  Serious: Yes (Hospitalization)
  Sender: FDA-Public Use
  Company Number: 2006097909

PATIENT
  Age: 57 Year
  Sex: Male

DRUGS (6)
  1. SUTENT [Suspect]
     Dosage: 50 MG (1 IN 1 D); ORAL; 37.5 MG (1 IN 1 D); ORAL
     Route: 048
     Dates: start: 20060711, end: 20060727
  2. SUTENT [Suspect]
     Dosage: 50 MG (1 IN 1 D); ORAL; 37.5 MG (1 IN 1 D); ORAL
     Route: 048
     Dates: start: 20060803
  3. TRILEPTAL (OXCARAZEPINE) [Concomitant]
  4. MORPHINE SULFATE [Concomitant]
  5. DURAGESIC-100 [Concomitant]
  6. PRAZEPAM [Concomitant]

REACTIONS (2)
  - ABDOMINAL MASS [None]
  - FISTULA [None]
